FAERS Safety Report 4411466-5 (Version None)
Quarter: 2004Q2

REPORT INFORMATION
  Report Type: 
  Country: None (occurrence: None)
  Receive Date: 20040630
  Receipt Date: 20040525
  Transmission Date: 20050107
  Serious: No
  Sender: FDA-Public Use
  Company Number: 04P-163-0261876-00

PATIENT
  Age: 40 Year
  Sex: Female
  Weight: 88.4514 kg

DRUGS (13)
  1. HUMIRA [Suspect]
     Indication: RHEUMATOID ARTHRITIS
     Dosage: 40 MG, 1 IN 2 WK, SUBCUTANEOUS
     Route: 058
     Dates: start: 20040406
  2. PREDNISONE [Concomitant]
  3. SERETIDE MITE [Concomitant]
  4. NEBULIZER [Concomitant]
  5. FUROSEMIDE [Concomitant]
  6. CELECOXIB [Concomitant]
  7. PROPO-N APAP [Concomitant]
  8. ESOMEPRAZOLE [Concomitant]
  9. FEXOFENADINE HYDROCHLORIDE [Concomitant]
  10. LORAZEPAM [Concomitant]
  11. PAROXETINE HYDROCHLORIDE [Concomitant]
  12. ELESTAT [Concomitant]
  13. TRIAMCINOLONE ACETONIDE [Concomitant]

REACTIONS (2)
  - INJECTION SITE ERYTHEMA [None]
  - UNEVALUABLE EVENT [None]
